FAERS Safety Report 17153363 (Version 1)
Quarter: 2019Q4

REPORT INFORMATION
  Report Type: Spontaneous
  Country: ID (occurrence: ID)
  Receive Date: 20191213
  Receipt Date: 20191213
  Transmission Date: 20200122
  Serious: Yes (Other)
  Sender: FDA-Public Use
  Company Number: NVSC2019ID063216

PATIENT
  Age: 33 Year
  Sex: Male

DRUGS (3)
  1. NILOTINIB [Suspect]
     Active Substance: NILOTINIB
     Indication: CHRONIC MYELOID LEUKAEMIA
     Dosage: 400 MG, BID
     Route: 065
  2. IMATINIB. [Suspect]
     Active Substance: IMATINIB MESYLATE
     Indication: CHRONIC MYELOID LEUKAEMIA
     Dosage: UNK
     Route: 065
     Dates: end: 2017
  3. HYDROXYUREA. [Suspect]
     Active Substance: HYDROXYUREA
     Indication: PRODUCT USED FOR UNKNOWN INDICATION
     Dosage: 1000 MG, BID
     Route: 065

REACTIONS (18)
  - Monocyte count increased [Unknown]
  - Blood sodium decreased [Unknown]
  - Respiratory rate increased [Unknown]
  - Nausea [Unknown]
  - Blood potassium increased [Unknown]
  - Lymphocyte count decreased [Unknown]
  - Haematocrit decreased [Unknown]
  - Anaemia [Unknown]
  - Vomiting [Unknown]
  - Splenomegaly [Unknown]
  - Aspartate aminotransferase increased [Unknown]
  - Abdominal distension [Unknown]
  - Neutrophil count decreased [Unknown]
  - White blood cell count increased [Unknown]
  - Ill-defined disorder [Unknown]
  - Heart rate increased [Unknown]
  - Rhonchi [Unknown]
  - Cytogenetic analysis abnormal [Unknown]

NARRATIVE: CASE EVENT DATE: 20190813
